FAERS Safety Report 25548572 (Version 2)
Quarter: 2025Q4

REPORT INFORMATION
  Report Type: Spontaneous
  Country: TR (occurrence: TR)
  Receive Date: 20250714
  Receipt Date: 20251009
  Transmission Date: 20260118
  Serious: Yes (Other)
  Sender: UNICHEM
  Company Number: TR-UNICHEM LABORATORIES LIMITED-UNI-2025-TR-002683

PATIENT

DRUGS (5)
  1. ARIPIPRAZOLE [Suspect]
     Active Substance: ARIPIPRAZOLE
     Indication: Psychotic disorder
     Dosage: 30 MILLIGRAM, QD
     Route: 065
  2. ARIPIPRAZOLE [Suspect]
     Active Substance: ARIPIPRAZOLE
     Indication: Anger
  3. ARIPIPRAZOLE [Suspect]
     Active Substance: ARIPIPRAZOLE
     Indication: Suspiciousness
  4. ESCITALOPRAM [Concomitant]
     Active Substance: ESCITALOPRAM OXALATE
     Indication: Psychotic disorder
     Dosage: 10 MILLIGRAM, QD
     Route: 065
  5. QUETIAPINE [Concomitant]
     Active Substance: QUETIAPINE
     Indication: Psychotic disorder
     Dosage: 25 MILLIGRAM, QD
     Route: 065

REACTIONS (1)
  - Acute myopia [Recovered/Resolved]
